FAERS Safety Report 9088631 (Version 1)
Quarter: 2013Q1

REPORT INFORMATION
  Report Type: Spontaneous
  Country: US (occurrence: US)
  Receive Date: 20130201
  Receipt Date: 20130201
  Transmission Date: 20140127
  Serious: Yes (Other)
  Sender: FDA-Public Use
  Company Number: US-COVIDIEN/TYCO HEALTHCARE/MALLINCKRODT-T201300330

PATIENT
  Age: 54 Year
  Sex: Male

DRUGS (4)
  1. OXYCODONE/ACETAMINOPHEN [Suspect]
     Indication: PAIN
     Dosage: 2 TABS, TID
     Dates: start: 201301, end: 20130120
  2. OXYCODONE / ACETAMINOPHEN [Concomitant]
     Dosage: UNK
  3. CELEBREX [Concomitant]
     Dosage: UNK
  4. ACTOS [Concomitant]
     Dosage: UNK

REACTIONS (8)
  - Pharyngeal oedema [Recovered/Resolved]
  - Eye pruritus [Recovered/Resolved]
  - Throat irritation [Recovered/Resolved]
  - Sinus headache [Recovered/Resolved]
  - Feeling jittery [Recovered/Resolved]
  - Tongue pruritus [Recovered/Resolved]
  - Pruritus generalised [Recovered/Resolved]
  - Insomnia [Recovered/Resolved]
